FAERS Safety Report 25232562 (Version 1)
Quarter: 2025Q2

REPORT INFORMATION
  Report Type: Spontaneous
  Country: US (occurrence: US)
  Receive Date: 20250424
  Receipt Date: 20250424
  Transmission Date: 20250716
  Serious: No
  Sender: SANOFI AVENTIS
  Company Number: US-SA-2025SA116952

PATIENT
  Sex: Male

DRUGS (16)
  1. DUPIXENT [Suspect]
     Active Substance: DUPILUMAB
     Indication: Asthma
     Route: 058
  2. ADVAIR HFA [Concomitant]
     Active Substance: FLUTICASONE PROPIONATE\SALMETEROL XINAFOATE
  3. ALBUTEROL SULFATE [Concomitant]
     Active Substance: ALBUTEROL SULFATE
  4. AMLODIPINE [Concomitant]
     Active Substance: AMLODIPINE BESYLATE
  5. ANUCORT-HC [Concomitant]
     Active Substance: HYDROCORTISONE ACETATE
  6. ASPIRIN [Concomitant]
     Active Substance: ASPIRIN
  7. BREO ELLIPTA [Concomitant]
     Active Substance: FLUTICASONE FUROATE\VILANTEROL TRIFENATATE
  8. CLOBETASOL [Concomitant]
     Active Substance: CLOBETASOL
  9. DIAZEPAM [Concomitant]
     Active Substance: DIAZEPAM
  10. DIAZEPAM [Concomitant]
     Active Substance: DIAZEPAM
  11. IBUPROFEN [Concomitant]
     Active Substance: IBUPROFEN
  12. LISINOPRIL [Concomitant]
     Active Substance: LISINOPRIL
  13. MONTELUKAST [Concomitant]
     Active Substance: MONTELUKAST
  14. OSELTAMIVIR [Concomitant]
     Active Substance: OSELTAMIVIR
  15. PREDNISONE [Concomitant]
     Active Substance: PREDNISONE
  16. TIZANIDINE [Concomitant]
     Active Substance: TIZANIDINE

REACTIONS (2)
  - Asthma [Unknown]
  - Impaired quality of life [Unknown]
